FAERS Safety Report 9246267 (Version 4)
Quarter: 2016Q1

REPORT INFORMATION
  Report Type: Spontaneous
  Country: US (occurrence: US)
  Receive Date: 20130422
  Receipt Date: 20160302
  Transmission Date: 20160526
  Serious: Yes (Hospitalization, Other)
  Sender: FDA-Public Use
  Company Number: US-009507513-1304USA010979

PATIENT
  Sex: Male
  Weight: 120.18 kg

DRUGS (1)
  1. PROPECIA [Suspect]
     Active Substance: FINASTERIDE
     Indication: ALOPECIA
     Dosage: 1 MG, UNKNOWN
     Route: 048
     Dates: start: 200302, end: 201009

REACTIONS (30)
  - Painful ejaculation [Unknown]
  - Hypogonadism [Not Recovered/Not Resolved]
  - Stress [Unknown]
  - Bronchitis [Recovering/Resolving]
  - Penile size reduced [Unknown]
  - Loss of libido [Unknown]
  - Hyperlipidaemia [Unknown]
  - Hypothyroidism [Not Recovered/Not Resolved]
  - Erectile dysfunction [Unknown]
  - Depression [Not Recovered/Not Resolved]
  - Hypertriglyceridaemia [Unknown]
  - Myocardial infarction [Unknown]
  - Myocardial infarction [Unknown]
  - Cognitive disorder [Not Recovered/Not Resolved]
  - Anxiety [Not Recovered/Not Resolved]
  - Penis injury [Unknown]
  - Brain injury [Unknown]
  - Groin pain [Unknown]
  - Cardiomegaly [Unknown]
  - Sinus disorder [Unknown]
  - Hormone level abnormal [Unknown]
  - Genital hypoaesthesia [Unknown]
  - Testicular pain [Unknown]
  - Ejaculation disorder [Unknown]
  - Transient ischaemic attack [Unknown]
  - Testicular disorder [Unknown]
  - Andropause [Unknown]
  - Sexual dysfunction [Not Recovered/Not Resolved]
  - Diabetes mellitus [Unknown]
  - Weight increased [Unknown]

NARRATIVE: CASE EVENT DATE: 200303
